FAERS Safety Report 10253727 (Version 1)
Quarter: 2014Q2

REPORT INFORMATION
  Report Type: Spontaneous
  Country: CN (occurrence: CN)
  Receive Date: 20140623
  Receipt Date: 20140623
  Transmission Date: 20141212
  Serious: Yes (Death, Other)
  Sender: FDA-Public Use
  Company Number: CN-BAXTER-2014BAX032468

PATIENT
  Age: 34 Year
  Sex: Male

DRUGS (4)
  1. ENDOXAN 1G [Suspect]
     Indication: LYMPHADENOPATHY
     Route: 065
  2. DOXORUBICIN [Suspect]
     Indication: LYMPHADENOPATHY
     Route: 065
  3. VINCRISTINE [Suspect]
     Indication: LYMPHADENOPATHY
     Route: 065
  4. PREDNISOLONE [Suspect]
     Indication: LYMPHADENOPATHY
     Route: 065

REACTIONS (3)
  - Recurrent cancer [Fatal]
  - B-cell lymphoma [Unknown]
  - Mantle cell lymphoma [Unknown]
